FAERS Safety Report 5179898-8 (Version None)
Quarter: 2006Q4

REPORT INFORMATION
  Report Type: 
  Country: None (occurrence: None)
  Receive Date: 20061211
  Receipt Date: 20061127
  Transmission Date: 20070319
  Serious: Yes (Hospitalization)
  Sender: FDA-Public Use
  Company Number: 150279ISR

PATIENT
  Age: 15 Year
  Sex: Female

DRUGS (1)
  1. CARBOPLATIN [Suspect]
     Indication: BRAIN NEOPLASM
     Dosage: 800 MG (1 IN 1 D)
     Route: 042
     Dates: start: 20061023, end: 20061023

REACTIONS (4)
  - CHILLS [None]
  - DERMATITIS EXFOLIATIVE [None]
  - PYREXIA [None]
  - URTICARIA [None]
